FAERS Safety Report 14158623 (Version 1)
Quarter: 2017Q4

REPORT INFORMATION
  Report Type: Spontaneous
  Country: US (occurrence: US)
  Receive Date: 20171106
  Receipt Date: 20171106
  Transmission Date: 20180321
  Serious: No
  Sender: FDA-Public Use
  Company Number: US-ELI_LILLY_AND_COMPANY-US201710012785

PATIENT
  Age: 83 Year
  Sex: Male

DRUGS (3)
  1. FORTEO [Suspect]
     Active Substance: TERIPARATIDE
     Indication: COMPRESSION FRACTURE
     Dosage: UNK UNK, DAILY
     Route: 058
     Dates: start: 201705
  2. FORTEO [Suspect]
     Active Substance: TERIPARATIDE
     Indication: OSTEOPENIA
     Dosage: UNK, UNKNOWN
     Route: 065
  3. FORTEO [Suspect]
     Active Substance: TERIPARATIDE
     Dosage: UNK
     Dates: end: 20171027

REACTIONS (5)
  - Drug dose omission [Unknown]
  - Off label use [Unknown]
  - Surgical procedure repeated [Unknown]
  - Pain [Recovering/Resolving]
  - Compression fracture [Recovering/Resolving]

NARRATIVE: CASE EVENT DATE: 201705
